FAERS Safety Report 17508808 (Version 3)
Quarter: 2020Q3

REPORT INFORMATION
  Report Type: Spontaneous
  Country: DE (occurrence: DE)
  Receive Date: 20200306
  Receipt Date: 20200818
  Transmission Date: 20201102
  Serious: Yes (Other)
  Sender: FDA-Public Use
  Company Number: DE-PFIZER INC-2020095248

PATIENT

DRUGS (1)
  1. CYTOTEC [Suspect]
     Active Substance: MISOPROSTOL
     Indication: LABOUR INDUCTION
     Dosage: UNK
     Route: 064
     Dates: start: 20190525, end: 20190525

REACTIONS (6)
  - Foetal exposure during delivery [Unknown]
  - Foetal heart rate decreased [Unknown]
  - Dysphagia [Unknown]
  - Muscle tightness [Unknown]
  - Somnolence neonatal [Unknown]
  - Screaming [Unknown]

NARRATIVE: CASE EVENT DATE: 20190525
